FAERS Safety Report 23997914 (Version 3)
Quarter: 2025Q1

REPORT INFORMATION
  Report Type: Spontaneous
  Country: US (occurrence: US)
  Receive Date: 20240621
  Receipt Date: 20250109
  Transmission Date: 20250408
  Serious: No
  Sender: SANOFI AVENTIS
  Company Number: US-SA-SAC20240611001252

PATIENT
  Sex: Female

DRUGS (4)
  1. DUPIXENT [Suspect]
     Active Substance: DUPILUMAB
     Indication: Eosinophilic oesophagitis
     Dosage: 300 MG, QW
     Route: 058
     Dates: start: 202211
  2. TADALAFIL [Suspect]
     Active Substance: TADALAFIL
  3. WINREVAIR [Concomitant]
     Active Substance: SOTATERCEPT-CSRK
  4. ORENITRAM [Concomitant]
     Active Substance: TREPROSTINIL
     Dosage: 1.25 MG, TID

REACTIONS (6)
  - Flushing [Unknown]
  - Bronchitis [Unknown]
  - Peripheral swelling [Unknown]
  - Skin exfoliation [Unknown]
  - Arthralgia [Unknown]
  - Joint swelling [Unknown]

NARRATIVE: CASE EVENT DATE: 20250106
